FAERS Safety Report 21595299 (Version 1)
Quarter: 2022Q4

REPORT INFORMATION
  Report Type: Report from Study
  Country: US (occurrence: US)
  Receive Date: 20221115
  Receipt Date: 20221115
  Transmission Date: 20230112
  Serious: No
  Sender: FDA-Public Use
  Company Number: US-ABBVIE-4156572

PATIENT
  Sex: Female
  Weight: 61.6 kg

DRUGS (11)
  1. RINVOQ [Suspect]
     Active Substance: UPADACITINIB
     Indication: Product used for unknown indication
     Route: 048
     Dates: start: 202206, end: 20221004
  2. XIFAXAN [Concomitant]
     Active Substance: RIFAXIMIN
     Indication: Product used for unknown indication
     Dosage: 550 MG
  3. LEVOTHYROXINE [Concomitant]
     Active Substance: LEVOTHYROXINE
     Indication: Product used for unknown indication
     Dosage: 50 MCG
  4. COSENTYX [Concomitant]
     Active Substance: SECUKINUMAB
     Indication: Product used for unknown indication
     Dosage: SEN SOA ?150MG/ML
  5. LATANOPROST [Concomitant]
     Active Substance: LATANOPROST
     Indication: Product used for unknown indication
     Dosage: SOL 0.005%
  6. TEMAZEPAM [Concomitant]
     Active Substance: TEMAZEPAM
     Indication: Product used for unknown indication
     Dosage: 15 MG
  7. ZOLPIDEM TARTRATE [Concomitant]
     Active Substance: ZOLPIDEM TARTRATE
     Indication: Product used for unknown indication
     Dosage: 10 MG
  8. AMITRIPTYLINE [Concomitant]
     Active Substance: AMITRIPTYLINE
     Indication: Product used for unknown indication
     Dosage: BD PEN MINI MIS?25 MILLIGRAM
  9. LATANOPROST [Concomitant]
     Active Substance: LATANOPROST
     Indication: Glaucoma
  10. VALACYCLOVIR HYDROCHLORIDE [Concomitant]
     Active Substance: VALACYCLOVIR HYDROCHLORIDE
     Indication: Product used for unknown indication
  11. AMBIEN [Concomitant]
     Active Substance: ZOLPIDEM TARTRATE
     Indication: Sleep disorder

REACTIONS (6)
  - Oral disorder [Recovering/Resolving]
  - Acne [Not Recovered/Not Resolved]
  - Pain [Unknown]
  - Tongue exfoliation [Not Recovered/Not Resolved]
  - Swelling face [Unknown]
  - Herpes zoster [Not Recovered/Not Resolved]

NARRATIVE: CASE EVENT DATE: 20220101
